FAERS Safety Report 17832320 (Version 2)
Quarter: 2025Q3

REPORT INFORMATION
  Report Type: Spontaneous
  Country: US (occurrence: US)
  Receive Date: 20200528
  Receipt Date: 20250703
  Transmission Date: 20251021
  Serious: Yes (Death, Life-Threatening, Hospitalization, Other)
  Sender: AUROBINDO
  Company Number: US-MLMSERVICE-20200514-2303168-1

PATIENT
  Age: 61 Year
  Sex: Female

DRUGS (5)
  1. DEXAMETHASONE [Suspect]
     Active Substance: DEXAMETHASONE
     Indication: Central nervous system vasculitis
     Route: 065
  2. REVLIMID [Suspect]
     Active Substance: LENALIDOMIDE
     Indication: Product used for unknown indication
     Route: 065
  3. ACYCLOVIR [Concomitant]
     Active Substance: ACYCLOVIR
     Indication: Prophylaxis
     Route: 065
  4. ELIQUIS [Concomitant]
     Active Substance: APIXABAN
     Indication: Deep vein thrombosis
     Route: 065
     Dates: start: 2018
  5. METFORMIN [Concomitant]
     Active Substance: METFORMIN HYDROCHLORIDE
     Indication: Product used for unknown indication
     Route: 065

REACTIONS (11)
  - Listeriosis [Fatal]
  - Brain abscess [Fatal]
  - Listeriosis [Fatal]
  - Listeraemia [Fatal]
  - Encephalitis [Fatal]
  - Condition aggravated [Fatal]
  - Unresponsive to stimuli [Unknown]
  - Vomiting [Unknown]
  - Hypertension [Unknown]
  - Facial paralysis [Unknown]
  - Tachycardia [Unknown]

NARRATIVE: CASE EVENT DATE: 20190101
